FAERS Safety Report 26073433 (Version 1)
Quarter: 2025Q4

REPORT INFORMATION
  Report Type: Spontaneous
  Country: JP (occurrence: JP)
  Receive Date: 20251121
  Receipt Date: 20251121
  Transmission Date: 20260119
  Serious: No
  Sender: ALKEM
  Company Number: None

PATIENT
  Age: 78 Year
  Sex: Male

DRUGS (14)
  1. MINOCYCLINE [Suspect]
     Active Substance: MINOCYCLINE HYDROCHLORIDE
     Indication: Mycobacterial peritonitis
     Dosage: 100 MILLIGRAM, BID
     Route: 065
  2. LINEZOLID [Suspect]
     Active Substance: LINEZOLID
     Indication: Mycobacterial peritonitis
     Dosage: 600 MILLIGRAM, BID
     Route: 065
  3. LINEZOLID [Suspect]
     Active Substance: LINEZOLID
     Indication: Device related infection
  4. CIPROFLOXACIN [Suspect]
     Active Substance: CIPROFLOXACIN
     Indication: Serratia infection
     Dosage: UNK
     Route: 065
  5. CIPROFLOXACIN [Suspect]
     Active Substance: CIPROFLOXACIN
     Indication: Device related infection
  6. FAROPENEM [Suspect]
     Active Substance: FAROPENEM
     Indication: Device related infection
     Dosage: 200 MILLIGRAM, TID (EVERY 8 HOURS)
     Route: 065
  7. FAROPENEM [Suspect]
     Active Substance: FAROPENEM
     Indication: Serratia infection
     Dosage: UNK (6-WEEK COURSE)
     Route: 065
  8. FAROPENEM [Suspect]
     Active Substance: FAROPENEM
     Indication: Mycobacterial peritonitis
     Dosage: UNK (RESUMED 11 DAYS BEFORE ADMISSION)
     Route: 065
  9. FAROPENEM [Suspect]
     Active Substance: FAROPENEM
     Dosage: UNK (SWITCHED BACK)
     Route: 065
  10. CILASTATIN SODIUM\IMIPENEM [Concomitant]
     Active Substance: CILASTATIN SODIUM\IMIPENEM
     Indication: Mycobacterial peritonitis
     Dosage: 500 MILLIGRAM, BID
     Route: 065
  11. CILASTATIN SODIUM\IMIPENEM [Concomitant]
     Active Substance: CILASTATIN SODIUM\IMIPENEM
     Indication: Device related infection
  12. SULFAMETHOXAZOLE\TRIMETHOPRIM [Concomitant]
     Active Substance: SULFAMETHOXAZOLE\TRIMETHOPRIM
     Indication: Serratia infection
     Dosage: 5 MILLIGRAM/KILOGRAM, QD
     Route: 065
  13. SULFAMETHOXAZOLE\TRIMETHOPRIM [Concomitant]
     Active Substance: SULFAMETHOXAZOLE\TRIMETHOPRIM
     Indication: Device related infection
  14. SULFAMETHOXAZOLE\TRIMETHOPRIM [Concomitant]
     Active Substance: SULFAMETHOXAZOLE\TRIMETHOPRIM
     Indication: Mycobacterial peritonitis

REACTIONS (4)
  - Nausea [Unknown]
  - Vomiting [Unknown]
  - Drug eruption [Unknown]
  - Drug ineffective [Unknown]
